FAERS Safety Report 5151179-8 (Version None)
Quarter: 2006Q4

REPORT INFORMATION
  Report Type: 
  Country: None (occurrence: None)
  Receive Date: 20061115
  Receipt Date: 20061109
  Transmission Date: 20070319
  Serious: Yes (Other)
  Sender: FDA-Public Use
  Company Number: US-BRISTOL-MYERS SQUIBB COMPANY-13572052

PATIENT
  Age: 57 Year
  Sex: Female
  Weight: 91 kg

DRUGS (7)
  1. ORENCIA [Suspect]
     Indication: RHEUMATOID ARTHRITIS
     Route: 042
  2. DIOVAN [Concomitant]
  3. LASIX [Concomitant]
  4. LEXAPRO [Concomitant]
  5. ZETIA [Concomitant]
  6. PREDNISONE TAB [Concomitant]
  7. ACTONEL [Concomitant]

REACTIONS (1)
  - THYROID NEOPLASM [None]
